FAERS Safety Report 5533026-5 (Version None)
Quarter: 2007Q4

REPORT INFORMATION
  Report Type: 
  Country: None (occurrence: None)
  Receive Date: 20071120
  Receipt Date: 20071005
  Transmission Date: 20080405
  Serious: No
  Sender: FDA-Public Use
  Company Number: WAES 0710USA01511

PATIENT
  Age: 58 Year
  Sex: Female

DRUGS (15)
  1. JANUVIA [Suspect]
     Indication: DIABETES MELLITUS
     Dosage: 100 MG/DAILY/PO
     Route: 048
     Dates: start: 20070914
  2. ADVAIR DISKUS 100/50 [Concomitant]
  3. ALLEGRA [Concomitant]
  4. AMARYL [Concomitant]
  5. ASACOL [Concomitant]
  6. CELEBREX [Concomitant]
  7. COREG [Concomitant]
  8. GLUCOPHAGE [Concomitant]
  9. LEXAPRO [Concomitant]
  10. NEXIUM [Concomitant]
  11. TRICOR [Concomitant]
  12. XALATAN [Concomitant]
  13. ZETIA [Concomitant]
  14. THERAPY UNSPECIFIED [Concomitant]
  15. TIMOLOL MALEATE [Concomitant]

REACTIONS (2)
  - DEPRESSION [None]
  - SUICIDAL IDEATION [None]
